FAERS Safety Report 9999156 (Version 1)
Quarter: 2014Q1

REPORT INFORMATION
  Report Type: Spontaneous
  Country: CH (occurrence: CH)
  Receive Date: 20140312
  Receipt Date: 20140312
  Transmission Date: 20141002
  Serious: Yes (Other)
  Sender: FDA-Public Use
  Company Number: CH-009507513-1403CHE001942

PATIENT
  Age: 30 Year
  Sex: Male

DRUGS (3)
  1. REMERON [Suspect]
     Dosage: DOSE 1050 MG, ONCE
     Route: 048
     Dates: start: 20131031, end: 20131031
  2. ESCITALOPRAM [Suspect]
     Dosage: DOSE 410 MG, ONCE
     Route: 048
     Dates: start: 20131031, end: 20131031
  3. ASPIRIN [Suspect]
     Dosage: DOSE 2800 MG, ONCE
     Route: 048
     Dates: start: 20131031, end: 20131031

REACTIONS (4)
  - Suicide attempt [Recovered/Resolved]
  - Sopor [Unknown]
  - Poisoning [Unknown]
  - Intentional overdose [Unknown]
